FAERS Safety Report 8324755-9 (Version None)
Quarter: 2012Q1

REPORT INFORMATION
  Report Type: 
  Country: None (occurrence: None)
  Receive Date: 20120315
  Receipt Date: 20110411
  Transmission Date: 20120608
  Serious: No
  Sender: FDA-Public Use
  Company Number: PHHY2011US30274

PATIENT
  Age: 40 Year
  Sex: Female

DRUGS (6)
  1. VALIUM [Concomitant]
  2. CYMBALTA (FULOXETINE HYDROCHLORIDE) [Concomitant]
  3. LYRICA [Concomitant]
  4. GILENYA [Suspect]
     Dosage: 0.5 MG, QD, ORAL
     Route: 048
  5. OXYCONTIN [Concomitant]
  6. ZANAFLEX [Concomitant]

REACTIONS (3)
  - HYPERSOMNIA [None]
  - BACK PAIN [None]
  - MUSCLE SPASMS [None]
